FAERS Safety Report 24212645 (Version 2)
Quarter: 2024Q4

REPORT INFORMATION
  Report Type: Report from Study
  Country: AT (occurrence: AT)
  Receive Date: 20240815
  Receipt Date: 20241125
  Transmission Date: 20250114
  Serious: No
  Sender: TRAVERE THERAPEUTICS
  Company Number: TRAVERE

PATIENT
  Age: 30 Year
  Sex: Female
  Weight: 74 kg

DRUGS (1)
  1. FILSPARI [Suspect]
     Active Substance: SPARSENTAN
     Indication: IgA nephropathy
     Dosage: DATE OF LAST ADMINISTRATION: 25-JUN-2024.
     Route: 048
     Dates: start: 2024

REACTIONS (5)
  - Vertigo [Recovered/Resolved]
  - Dizziness [Recovered/Resolved]
  - Nausea [Recovered/Resolved]
  - Nausea [Recovered/Resolved]
  - Vomiting [Recovered/Resolved]

NARRATIVE: CASE EVENT DATE: 20240622
